FAERS Safety Report 8020911-8 (Version None)
Quarter: 2011Q4

REPORT INFORMATION
  Report Type: 
  Country: None (occurrence: None)
  Receive Date: 20111228
  Receipt Date: 20111215
  Transmission Date: 20120403
  Serious: Yes (Other)
  Sender: FDA-Public Use
  Company Number: 2011S1001704

PATIENT
  Age: 74 Year
  Sex: Male

DRUGS (1)
  1. ALIPZA (PITAVASTATIN) [Suspect]
     Indication: HYPERCHOLESTEROLAEMIA

REACTIONS (2)
  - ARTHRITIS [None]
  - RASH [None]
